FAERS Safety Report 5349639-X (Version None)
Quarter: 2007Q2

REPORT INFORMATION
  Report Type: 
  Country: None (occurrence: None)
  Receive Date: 20070607
  Receipt Date: 20070529
  Transmission Date: 20071010
  Serious: Yes (Life-Threatening, Hospitalization)
  Sender: FDA-Public Use
  Company Number: FR-ALLERGAN-0705634US

PATIENT
  Sex: Female

DRUGS (4)
  1. BOTOX 100 UNITS [Suspect]
     Indication: HYPERTONIC BLADDER
     Dosage: 300 UNITS, SINGLE
     Route: 043
  2. XYLOCAINE [Suspect]
     Indication: LOCAL ANAESTHESIA
     Route: 061
  3. DIPRIVAN [Suspect]
     Indication: GENERAL ANAESTHESIA
     Route: 042
  4. PROFENID [Suspect]
     Indication: DRUG USE FOR UNKNOWN INDICATION
     Route: 042

REACTIONS (1)
  - ANAPHYLACTIC SHOCK [None]
